FAERS Safety Report 20416433 (Version 2)
Quarter: 2022Q2

REPORT INFORMATION
  Report Type: Other
  Country: BR (occurrence: None)
  Receive Date: 20220202
  Receipt Date: 20220505
  Transmission Date: 20220721
  Serious: Yes (Other)
  Sender: FDA-Public Use
  Company Number: BR-ROCHE-2830701

PATIENT
  Age: 66 Year
  Sex: Female
  Weight: 60 kg

DRUGS (10)
  1. ACTEMRA [Suspect]
     Active Substance: TOCILIZUMAB
     Indication: Rheumatoid arthritis
     Route: 042
     Dates: start: 20210304
  2. ALPRAZOLAM [Concomitant]
     Active Substance: ALPRAZOLAM
     Indication: Panic disorder
  3. METFORMIN [Concomitant]
     Active Substance: METFORMIN HYDROCHLORIDE
     Indication: Diabetes mellitus
     Dosage: METFORMIN 850 MG AT LUNCH AND 500 MG AT DINNER?1 TABLET AT LUNCH AND 1 TABLET AT DINNER
  4. METFORMIN [Concomitant]
     Active Substance: METFORMIN HYDROCHLORIDE
     Dosage: 500 MG AT DINNER
     Route: 065
  5. INSULIN NOS [Concomitant]
     Active Substance: INSULIN NOS
     Indication: Diabetes mellitus
  6. GLIMEPIRIDE [Concomitant]
     Active Substance: GLIMEPIRIDE
     Indication: Diabetes mellitus
  7. GLIMEPIRIDE [Concomitant]
     Active Substance: GLIMEPIRIDE
  8. DORZOLAMIDE HYDROCHLORIDE\TIMOLOL MALEATE [Concomitant]
     Active Substance: DORZOLAMIDE HYDROCHLORIDE\TIMOLOL MALEATE
     Indication: Visual impairment
  9. TRAVATAN [Concomitant]
     Active Substance: TRAVOPROST
     Indication: Visual impairment
  10. BRIMONIDINE [Concomitant]
     Active Substance: BRIMONIDINE TARTRATE
     Indication: Visual impairment
     Dosage: 1 GGT IN THE MORNING AND 1 GGT AT NIGHT

REACTIONS (14)
  - Fall [Unknown]
  - Femur fracture [Recovering/Resolving]
  - Prosthesis implantation [Recovering/Resolving]
  - Cataract [Unknown]
  - Retinal detachment [Unknown]
  - Eye haemorrhage [Not Recovered/Not Resolved]
  - Balance disorder [Unknown]
  - Bedridden [Not Recovered/Not Resolved]
  - Arthralgia [Not Recovered/Not Resolved]
  - Diabetic retinopathy [Unknown]
  - Visual impairment [Not Recovered/Not Resolved]
  - Pain [Unknown]
  - Finger deformity [Not Recovered/Not Resolved]
  - Peripheral swelling [Not Recovered/Not Resolved]

NARRATIVE: CASE EVENT DATE: 20210502
